APPROVED DRUG PRODUCT: CIMETIDINE HYDROCHLORIDE
Active Ingredient: CIMETIDINE HYDROCHLORIDE
Strength: EQ 300MG BASE/5ML
Dosage Form/Route: SOLUTION;ORAL
Application: A074251 | Product #001 | TE Code: AA
Applicant: CHARTWELL MOLECULAR HOLDINGS LLC
Approved: Dec 22, 1994 | RLD: No | RS: No | Type: RX